FAERS Safety Report 7860060-2 (Version None)
Quarter: 2011Q4

REPORT INFORMATION
  Report Type: 
  Country: None (occurrence: None)
  Receive Date: 20111025
  Receipt Date: 20111021
  Transmission Date: 20120403
  Serious: No
  Sender: FDA-Public Use
  Company Number: 2011-01301

PATIENT
  Age: 65 Year
  Sex: Female
  Weight: 68.4932 kg

DRUGS (3)
  1. LOVAZA [Concomitant]
  2. ZICAM COLD REMEDY ORAL MIST [Suspect]
     Indication: NASOPHARYNGITIS
     Dosage: EVERY 3 HOURS
     Dates: start: 20111019
  3. MULTI-VITAMIN [Concomitant]

REACTIONS (1)
  - AGEUSIA [None]
